FAERS Safety Report 11217965 (Version 3)
Quarter: 2015Q3

REPORT INFORMATION
  Report Type: Report from Study
  Country: US (occurrence: US)
  Receive Date: 20150625
  Receipt Date: 20150814
  Transmission Date: 20151125
  Serious: Yes (Hospitalization)
  Sender: FDA-Public Use
  Company Number: US-BAYER-2015-260837

PATIENT
  Age: 58 Year
  Sex: Male
  Weight: 63.9 kg

DRUGS (4)
  1. REGORAFENIB [Suspect]
     Active Substance: REGORAFENIB
     Indication: COLON CANCER
     Dosage: 120 MG
     Route: 048
     Dates: start: 20150402
  2. REFAMETINIB [Suspect]
     Active Substance: REFAMETINIB
     Indication: COLON CANCER
     Dosage: 40 MG
     Route: 048
     Dates: start: 20150402
  3. OXYCODONE [Concomitant]
     Active Substance: OXYCODONE
     Dosage: 10 MG = 2TAB Q4, PRM
     Route: 048
  4. ONDANSETRON [Concomitant]
     Active Substance: ONDANSETRON
     Dosage: 4MG = 2ML Q6H, PRN
     Route: 042

REACTIONS (1)
  - Acute kidney injury [Recovered/Resolved]

NARRATIVE: CASE EVENT DATE: 20150520
